FAERS Safety Report 22260569 (Version 1)
Quarter: 2023Q2

REPORT INFORMATION
  Report Type: Spontaneous
  Country: US (occurrence: None)
  Receive Date: 20230427
  Receipt Date: 20230427
  Transmission Date: 20230722
  Serious: Yes (Other)
  Sender: FDA-Public Use
  Company Number: 2023A092416

PATIENT

DRUGS (1)
  1. BYDUREON BCISE [Suspect]
     Active Substance: EXENATIDE

REACTIONS (6)
  - Fall [Unknown]
  - Head injury [Unknown]
  - Dizziness [Unknown]
  - Malaise [Unknown]
  - Abdominal discomfort [Unknown]
  - Product use issue [Unknown]
